FAERS Safety Report 14372202 (Version 1)
Quarter: 2018Q1

REPORT INFORMATION
  Report Type: Spontaneous
  Country: JP (occurrence: JP)
  Receive Date: 20180110
  Receipt Date: 20180110
  Transmission Date: 20180509
  Serious: Yes (Other)
  Sender: FDA-Public Use
  Company Number: JP-VIRTUS PHARMACEUTICALS, LLC-2017VTS00681

PATIENT
  Age: 18 Year
  Sex: Female

DRUGS (1)
  1. LEVETIRACETAM. [Suspect]
     Active Substance: LEVETIRACETAM
     Indication: EPILEPSY
     Dosage: 1000 MG, 1X/DAY
     Route: 065

REACTIONS (3)
  - Brain oedema [Recovered/Resolved]
  - Drug withdrawal syndrome [Recovered/Resolved]
  - Central nervous system lesion [Recovered/Resolved]
